FAERS Safety Report 5005153-2 (Version None)
Quarter: 2006Q2

REPORT INFORMATION
  Report Type: 
  Country: None (occurrence: None)
  Receive Date: 20060512
  Receipt Date: 20060427
  Transmission Date: 20061013
  Serious: Yes (Life-Threatening, Hospitalization, Disabling)
  Sender: FDA-Public Use
  Company Number: WAES 0501ZAF00014

PATIENT
  Age: 59 Year
  Sex: Male

DRUGS (8)
  1. VIOXX [Suspect]
     Indication: NEOPLASM PROPHYLAXIS
     Dosage: 25 MG/DAILY/PO
     Route: 048
     Dates: start: 20010515, end: 20040705
  2. ACETAMINOPHEN [Suspect]
     Indication: PROPHYLAXIS
     Dosage: 325 MG/PRN/PO
     Route: 048
  3. ACETAMINOPHEN (+) CAFFEINE (+) [Concomitant]
  4. AMIODARONE HCL [Concomitant]
  5. ASPIRIN CALCIUM [Concomitant]
  6. ATORVASTATIN CALCIUM [Concomitant]
  7. BISOPROLOL FUMARATE [Concomitant]
  8. RAMIPRIL [Concomitant]

REACTIONS (11)
  - BLOOD GLUCOSE INCREASED [None]
  - CONDITION AGGRAVATED [None]
  - GASTRIC DISORDER [None]
  - GLYCOSYLATED HAEMOGLOBIN INCREASED [None]
  - INTRACARDIAC THROMBUS [None]
  - MYOCARDIAL INFARCTION [None]
  - MYOCARDIAL ISCHAEMIA [None]
  - RESPIRATORY DISORDER [None]
  - THERAPY NON-RESPONDER [None]
  - VENTRICULAR DYSFUNCTION [None]
  - WOUND SEPSIS [None]
